FAERS Safety Report 25276284 (Version 1)
Quarter: 2025Q2

REPORT INFORMATION
  Report Type: Spontaneous
  Country: ES (occurrence: ES)
  Receive Date: 20250507
  Receipt Date: 20250507
  Transmission Date: 20250716
  Serious: Yes (Other)
  Sender: AUROBINDO
  Company Number: ES-ABBVIE-5567367

PATIENT
  Age: 57 Year
  Sex: Male

DRUGS (10)
  1. ACITRETIN [Suspect]
     Active Substance: ACITRETIN
     Indication: Subcorneal pustular dermatosis
     Dosage: 10 MILLIGRAM, ONCE A DAY
     Route: 065
  2. MYCOPHENOLIC ACID [Suspect]
     Active Substance: MYCOPHENOLIC ACID
     Indication: Subcorneal pustular dermatosis
     Dosage: 360 MILLIGRAM, ONCE A DAY
  3. ADALIMUMAB [Suspect]
     Active Substance: ADALIMUMAB
     Indication: Subcorneal pustular dermatosis
     Route: 058
  4. ADALIMUMAB [Suspect]
     Active Substance: ADALIMUMAB
     Route: 058
  5. ADALIMUMAB [Suspect]
     Active Substance: ADALIMUMAB
     Route: 058
  6. DAPSONE [Suspect]
     Active Substance: DAPSONE
     Indication: Subcorneal pustular dermatosis
     Route: 065
  7. ISOTRETINOIN [Suspect]
     Active Substance: ISOTRETINOIN
     Indication: Subcorneal pustular dermatosis
     Dosage: 20 MILLIGRAM, ONCE A DAY
     Route: 065
  8. METHOTREXATE [Suspect]
     Active Substance: METHOTREXATE
     Indication: Subcorneal pustular dermatosis
     Dosage: 15 MILLIGRAM, EVERY WEEK
  9. PREDNISONE [Suspect]
     Active Substance: PREDNISONE
     Indication: Subcorneal pustular dermatosis
     Dosage: 1 MILLIGRAM/KILOGRAM, ONCE A DAY
     Route: 065
  10. RITUXIMAB [Suspect]
     Active Substance: RITUXIMAB
     Indication: Subcorneal pustular dermatosis

REACTIONS (5)
  - Haemolysis [Unknown]
  - Methaemoglobinaemia [Unknown]
  - Therapeutic product effect incomplete [Unknown]
  - Off label use [Unknown]
  - Drug ineffective [Unknown]
